FAERS Safety Report 9523582 (Version 6)
Quarter: 2015Q1

REPORT INFORMATION
  Report Type: Report from Study
  Country: FR (occurrence: FR)
  Receive Date: 20130913
  Receipt Date: 20150218
  Transmission Date: 20150721
  Serious: Yes (Hospitalization)
  Sender: FDA-Public Use
  Company Number: FR-B.I. PHARMACEUTICALS,INC./RIDGEFIELD-2013-BI-26252BI

PATIENT
  Age: 55 Year
  Sex: Male

DRUGS (6)
  1. SPIFEN [Concomitant]
     Active Substance: IBUPROFEN
     Indication: BONE PAIN
     Dosage: 400 MG
     Route: 048
     Dates: start: 20130419
  2. VITAMINE D [Concomitant]
     Indication: PROPHYLAXIS
     Dosage: 4000 U
     Route: 048
     Dates: start: 20130705
  3. XGEVA [Concomitant]
     Active Substance: DENOSUMAB
     Indication: PROPHYLAXIS
     Dosage: 4 MG
     Route: 058
     Dates: start: 20130705
  4. BIBW 2992 [Suspect]
     Active Substance: AFATINIB
     Indication: SQUAMOUS CELL CARCINOMA OF LUNG
     Dosage: 40 MG
     Route: 048
     Dates: start: 20130809
  5. ZALDIAR [Concomitant]
     Active Substance: ACETAMINOPHEN\TRAMADOL HYDROCHLORIDE
     Indication: BONE LESION
     Dosage: DOSE PER APPLICATION: 37.5MG/325 MG AND DAILY DOSE: 37.5MG/325 MG IF NEEDED
     Route: 048
     Dates: start: 201305
  6. CALCIUM [Concomitant]
     Active Substance: CALCIUM
     Indication: PROPHYLAXIS
     Dosage: 500 MG
     Route: 048
     Dates: start: 20130705

REACTIONS (3)
  - Neck pain [Recovered/Resolved with Sequelae]
  - Nausea [Recovered/Resolved]
  - Diarrhoea [Not Recovered/Not Resolved]

NARRATIVE: CASE EVENT DATE: 20130817
